FAERS Safety Report 23487516 (Version 1)
Quarter: 2024Q1

REPORT INFORMATION
  Report Type: Spontaneous
  Country: GB (occurrence: GB)
  Receive Date: 20240206
  Receipt Date: 20240206
  Transmission Date: 20240410
  Serious: Yes (Other)
  Sender: FDA-Public Use
  Company Number: None

PATIENT
  Age: 31 Year
  Sex: Female

DRUGS (1)
  1. CETIRIZINE [Suspect]
     Active Substance: CETIRIZINE HYDROCHLORIDE
     Indication: Multiple allergies
     Dosage: ONE TABLET ONCE A DAY
     Route: 065

REACTIONS (5)
  - Pruritus [Recovered/Resolved]
  - Insomnia [Recovered/Resolved]
  - Self-medication [Unknown]
  - Therapy cessation [Unknown]
  - Product dose omission issue [Unknown]
